FAERS Safety Report 19416243 (Version 1)
Quarter: 2021Q2

REPORT INFORMATION
  Report Type: Spontaneous
  Country: US (occurrence: US)
  Receive Date: 20210615
  Receipt Date: 20210615
  Transmission Date: 20210717
  Serious: No
  Sender: FDA-Public Use
  Company Number: US-ALLERGAN-2105581US

PATIENT
  Sex: Female

DRUGS (6)
  1. KYBELLA [Suspect]
     Active Substance: DEOXYCHOLIC ACID
     Dosage: 2 ML, SINGLE
     Route: 058
     Dates: start: 20200604, end: 20200604
  2. KYBELLA [Suspect]
     Active Substance: DEOXYCHOLIC ACID
     Dosage: 2 ML, SINGLE
     Route: 058
     Dates: start: 202005, end: 202005
  3. KYBELLA [Suspect]
     Active Substance: DEOXYCHOLIC ACID
     Dosage: 4 ML, SINGLE
     Route: 058
     Dates: start: 202001, end: 202001
  4. KYBELLA [Suspect]
     Active Substance: DEOXYCHOLIC ACID
     Dosage: 4 ML, SINGLE
     Route: 058
     Dates: start: 202008, end: 202008
  5. KYBELLA [Suspect]
     Active Substance: DEOXYCHOLIC ACID
     Indication: FAT TISSUE INCREASED
     Dosage: UNK, SINGLE
     Route: 058
     Dates: start: 20200916
  6. KYBELLA [Suspect]
     Active Substance: DEOXYCHOLIC ACID
     Dosage: 2 ML, SINGLE
     Route: 058
     Dates: start: 20200403, end: 20200403

REACTIONS (1)
  - Drug ineffective [Unknown]
